FAERS Safety Report 25864269 (Version 1)
Quarter: 2025Q3

REPORT INFORMATION
  Report Type: Spontaneous
  Country: US (occurrence: None)
  Receive Date: 20250929
  Receipt Date: 20250929
  Transmission Date: 20251020
  Serious: Yes (Death)
  Sender: FDA-CTU
  Company Number: None

PATIENT
  Age: 71 Year
  Sex: Female

DRUGS (1)
  1. REPATHA [Suspect]
     Active Substance: EVOLOCUMAB
     Dosage: 140 MG/ML Q2 WEEKS SUBCUTANEOUS
     Route: 058

REACTIONS (1)
  - Cardiovascular disorder [None]

NARRATIVE: CASE EVENT DATE: 20250911
